FAERS Safety Report 18962784 (Version 1)
Quarter: 2021Q1

REPORT INFORMATION
  Report Type: Spontaneous
  Country: US (occurrence: US)
  Receive Date: 20210302
  Receipt Date: 20210302
  Transmission Date: 20210420
  Serious: Yes (Disabling, Other)
  Sender: FDA-Public Use
  Company Number: None

PATIENT
  Age: 59 Year
  Sex: Female
  Weight: 122.47 kg

DRUGS (2)
  1. LOVENOX [Suspect]
     Active Substance: ENOXAPARIN SODIUM
     Indication: PULMONARY EMBOLISM
     Route: 058
     Dates: start: 20210105, end: 20210123
  2. LOVENOX [Suspect]
     Active Substance: ENOXAPARIN SODIUM
     Dates: start: 2020

REACTIONS (7)
  - Contusion [None]
  - Chest pain [None]
  - Pain in extremity [None]
  - Dyspnoea [None]
  - Fatigue [None]
  - Recalled product administered [None]
  - Wrong dose [None]

NARRATIVE: CASE EVENT DATE: 20210105
